FAERS Safety Report 9819934 (Version 2)
Quarter: 2013Q4

REPORT INFORMATION
  Report Type: Spontaneous
  Country: US (occurrence: None)
  Receive Date: 20131223
  Receipt Date: 20131223
  Transmission Date: 20140711
  Serious: Yes (Other)
  Sender: FDA-Public Use
  Company Number: 218370

PATIENT
  Age: 58 Year
  Sex: Female

DRUGS (1)
  1. PICATO GEL [Suspect]
     Indication: ACTINIC KERATOSIS
     Dosage: 1 IN 1 D, TOPICAL
     Route: 061
     Dates: start: 20120727, end: 20120728

REACTIONS (8)
  - Thermal burn [None]
  - Urticaria [None]
  - Swelling face [None]
  - Scab [None]
  - Product label issue [None]
  - Application site urticaria [None]
  - Skin discolouration [None]
  - Scar [None]
